FAERS Safety Report 17815407 (Version 1)
Quarter: 2020Q2

REPORT INFORMATION
  Report Type: Spontaneous
  Country: US (occurrence: US)
  Receive Date: 20200522
  Receipt Date: 20200522
  Transmission Date: 20200714
  Serious: Yes (Hospitalization)
  Sender: FDA-Public Use
  Company Number: US-ACCORD-159322

PATIENT
  Age: 77 Year
  Sex: Female
  Weight: 88.9 kg

DRUGS (14)
  1. LEVOTHYROXINE. [Concomitant]
     Active Substance: LEVOTHYROXINE
     Dosage: QD
  2. MELATONIN [Concomitant]
     Active Substance: MELATONIN
     Dosage: QD
  3. METHOTREXATE ACCORD [Suspect]
     Active Substance: METHOTREXATE
     Indication: CENTRAL NERVOUS SYSTEM LYMPHOMA
     Dosage: 1 GM/40ML/ VIAL
     Route: 042
     Dates: start: 20190906
  4. METHOTREXATE ACCORD [Suspect]
     Active Substance: METHOTREXATE
     Indication: CENTRAL NERVOUS SYSTEM LYMPHOMA
     Dosage: 1 GM/40ML/ VIAL
     Route: 042
     Dates: start: 20191007
  5. DEXLANSOPRAZOLE [Concomitant]
     Active Substance: DEXLANSOPRAZOLE
     Dosage: QD
  6. NEBIVOLOL/NEBIVOLOL HYDROCHLORIDE [Concomitant]
     Active Substance: NEBIVOLOL HYDROCHLORIDE
     Dosage: 10 MG QD
  7. METHOTREXATE ACCORD [Suspect]
     Active Substance: METHOTREXATE
     Indication: CENTRAL NERVOUS SYSTEM LYMPHOMA
     Dosage: 1 GM/40ML/ VIAL
     Route: 042
     Dates: start: 20190923
  8. ALPRAZOLAM. [Concomitant]
     Active Substance: ALPRAZOLAM
     Dosage: BID PRN
  9. LORATADINE. [Concomitant]
     Active Substance: LORATADINE
     Dosage: QD
  10. SERTRALINE [Concomitant]
     Active Substance: SERTRALINE HYDROCHLORIDE
     Dosage: 150 MG QD
  11. ONDANSETRON [Concomitant]
     Active Substance: ONDANSETRON
     Dosage: 8 MG EVERY 8 HRS PRN
  12. OXYBUTYNIN. [Concomitant]
     Active Substance: OXYBUTYNIN CHLORIDE
  13. RITUXIMAB. [Suspect]
     Active Substance: RITUXIMAB
     Indication: PRODUCT USED FOR UNKNOWN INDICATION
     Dosage: 865-900 MG EVERY 14 DAYS
  14. FOLINIC ACID [Concomitant]
     Active Substance: LEUCOVORIN
     Dosage: EVERY 8 HRS FOR 2 DAYS

REACTIONS (1)
  - Pneumonitis [Not Recovered/Not Resolved]

NARRATIVE: CASE EVENT DATE: 20191021
